FAERS Safety Report 10290221 (Version 1)
Quarter: 2014Q3

REPORT INFORMATION
  Report Type: Spontaneous
  Country: VE (occurrence: None)
  Receive Date: 20140707
  Receipt Date: 20140707
  Transmission Date: 20150326
  Serious: No
  Sender: FDA-Public Use
  Company Number: None

PATIENT
  Age: 63 Year
  Sex: Male
  Weight: 87 kg

DRUGS (1)
  1. TAMSULOSIN 0.4MG CAP 0.4 MG LABORATORIOS NOLVER, ARGENTINA [Suspect]
     Active Substance: TAMSULOSIN
     Route: 048
     Dates: start: 20140403, end: 20140705

REACTIONS (3)
  - Disease recurrence [None]
  - Benign prostatic hyperplasia [None]
  - Skin discolouration [None]

NARRATIVE: CASE EVENT DATE: 20140705
